FAERS Safety Report 18466592 (Version 1)
Quarter: 2020Q4

REPORT INFORMATION
  Report Type: Spontaneous
  Country: DE (occurrence: DE)
  Receive Date: 20201105
  Receipt Date: 20201105
  Transmission Date: 20210114
  Serious: Yes (Hospitalization)
  Sender: FDA-Public Use
  Company Number: DE-TEVA-2020-DE-1844025

PATIENT
  Age: 62 Year
  Sex: Female

DRUGS (7)
  1. ACICLOVIR [Suspect]
     Active Substance: ACYCLOVIR
     Indication: MENINGITIS BACTERIAL
     Route: 065
  2. TDAP VACCINE [Suspect]
     Active Substance: DIPHTHERIA AND TETANUS TOXOIDS AND PERTUSSIS VACCINE
     Indication: IMMUNISATION
     Route: 065
  3. AZITHROMYCIN ANHYDROUS. [Suspect]
     Active Substance: AZITHROMYCIN ANHYDROUS
     Indication: UPPER RESPIRATORY TRACT INFECTION
     Route: 065
  4. AMPICILLIN [Suspect]
     Active Substance: AMPICILLIN
     Indication: MENINGITIS BACTERIAL
     Route: 065
  5. AMPICILLIN/SULBACTAM [Suspect]
     Active Substance: AMPICILLIN SODIUM\SULBACTAM SODIUM
     Indication: UPPER RESPIRATORY TRACT INFECTION
     Route: 065
  6. CEFTRIAXONE. [Suspect]
     Active Substance: CEFTRIAXONE
     Indication: MENINGITIS BACTERIAL
     Route: 065
  7. DEXAMETHASONE. [Suspect]
     Active Substance: DEXAMETHASONE
     Indication: MENINGITIS BACTERIAL
     Route: 065

REACTIONS (2)
  - Drug ineffective [Unknown]
  - Acute disseminated encephalomyelitis [Recovering/Resolving]
